FAERS Safety Report 12658212 (Version 1)
Quarter: 2016Q3

REPORT INFORMATION
  Report Type: Spontaneous
  Country: US (occurrence: US)
  Receive Date: 20160817
  Receipt Date: 20160817
  Transmission Date: 20161109
  Serious: No
  Sender: FDA-Public Use
  Company Number: US-BEH-2016072541

PATIENT
  Sex: Female
  Weight: 54.42 kg

DRUGS (15)
  1. SEMPREX [Concomitant]
  2. NEXIUM [Concomitant]
     Active Substance: ESOMEPRAZOLE MAGNESIUM
  3. EPIPEN [Concomitant]
     Active Substance: EPINEPHRINE
  4. SINGULAIR [Concomitant]
     Active Substance: MONTELUKAST SODIUM
  5. KEPPRA [Concomitant]
     Active Substance: LEVETIRACETAM
  6. ACETAMINOPHEN. [Concomitant]
     Active Substance: ACETAMINOPHEN
  7. DIPHENHYDRAMINE. [Concomitant]
     Active Substance: DIPHENHYDRAMINE
  8. LIDOCAINE. [Concomitant]
     Active Substance: LIDOCAINE
  9. HIZENTRA [Suspect]
     Active Substance: HUMAN IMMUNOGLOBULIN G
     Indication: IMMUNODEFICIENCY COMMON VARIABLE
     Dosage: 8 G, QW
     Route: 058
     Dates: start: 20150818
  10. TOPIRAMATE. [Concomitant]
     Active Substance: TOPIRAMATE
  11. KLONOPIN [Concomitant]
     Active Substance: CLONAZEPAM
  12. TOPAMAX [Concomitant]
     Active Substance: TOPIRAMATE
  13. PREDNISONE. [Concomitant]
     Active Substance: PREDNISONE
  14. SOMA [Concomitant]
     Active Substance: CARISOPRODOL
  15. NORTRIPTYLINE [Concomitant]
     Active Substance: NORTRIPTYLINE

REACTIONS (2)
  - Lymph gland infection [Unknown]
  - Ear infection [Unknown]
